FAERS Safety Report 13080141 (Version 1)
Quarter: 2017Q1

REPORT INFORMATION
  Report Type: Spontaneous
  Country: GB (occurrence: GB)
  Receive Date: 20170103
  Receipt Date: 20170103
  Transmission Date: 20170428
  Serious: Yes (Hospitalization, Other)
  Sender: FDA-Public Use
  Company Number: GB-009507513-1701GBR000388

PATIENT
  Age: 51 Year
  Sex: Female

DRUGS (15)
  1. THALIDOMIDE [Suspect]
     Active Substance: THALIDOMIDE
     Indication: PLASMA CELL MYELOMA
     Dosage: 100 MG, 1 IN 1 D
     Route: 048
  2. THALIDOMIDE [Suspect]
     Active Substance: THALIDOMIDE
     Dosage: 200 MG, 1 IN 1 D
     Route: 048
  3. ALLOPURINOL. [Concomitant]
     Active Substance: ALLOPURINOL
     Indication: PRODUCT USED FOR UNKNOWN INDICATION
     Dosage: 100 MG, 1 IN 1 D
     Route: 048
  4. DOMPERIDONE [Concomitant]
     Active Substance: DOMPERIDONE
     Indication: PRODUCT USED FOR UNKNOWN INDICATION
     Dosage: 40 MG (10 MG, 4 IN 1 D)
     Route: 048
  5. THALIDOMIDE [Suspect]
     Active Substance: THALIDOMIDE
     Dosage: 50 MG, 1 IN 1 D
     Route: 048
  6. FLUCONAZOLE. [Concomitant]
     Active Substance: FLUCONAZOLE
     Indication: PRODUCT USED FOR UNKNOWN INDICATION
     Dosage: 50 MG, 1 IN 1 D
     Route: 048
  7. PYRIMETHAMINE [Concomitant]
     Active Substance: PYRIMETHAMINE
     Indication: PRODUCT USED FOR UNKNOWN INDICATION
     Dosage: 5000 UNITS (1 IN 1 D)
     Route: 058
  8. ONDANSETRON [Concomitant]
     Active Substance: ONDANSETRON
     Indication: PRODUCT USED FOR UNKNOWN INDICATION
     Dosage: 16 MG (8 MG, 2 IN 1 D)
     Route: 048
  9. DEXAMETHASONE. [Suspect]
     Active Substance: DEXAMETHASONE
     Dosage: 20 MG, 1 IN 1 D
     Route: 048
  10. THALIDOMIDE [Suspect]
     Active Substance: THALIDOMIDE
     Dosage: 50 MG, 2 IN 1 D
     Route: 048
  11. OMEPRAZOLE. [Concomitant]
     Active Substance: OMEPRAZOLE
     Indication: PRODUCT USED FOR UNKNOWN INDICATION
     Dosage: 20 MG, 1 IN 1D
     Route: 065
  12. SULFAMETHOXAZOLE (+) TRIMETHOPRIM [Concomitant]
     Active Substance: SULFAMETHOXAZOLE\TRIMETHOPRIM
     Indication: PRODUCT USED FOR UNKNOWN INDICATION
     Dosage: 480 MG, 1 IN 1 D
  13. CYCLOPHOSPHAMIDE. [Suspect]
     Active Substance: CYCLOPHOSPHAMIDE
     Indication: PLASMA CELL MYELOMA
     Dosage: 500 MG, UNK
     Route: 048
  14. ACYCLOVIR. [Concomitant]
     Active Substance: ACYCLOVIR
     Indication: PRODUCT USED FOR UNKNOWN INDICATION
     Dosage: 800 MG, (400 MG, 2 IN 1 D)
     Route: 048
  15. DEXAMETHASONE. [Suspect]
     Active Substance: DEXAMETHASONE
     Indication: PLASMA CELL MYELOMA
     Dosage: 40 MG, 1 IN 1 D
     Route: 048

REACTIONS (13)
  - Urinary retention [Unknown]
  - Tremor [Unknown]
  - Hyperhidrosis [Unknown]
  - Haemorrhoids [Unknown]
  - Lower respiratory tract infection [Unknown]
  - Pain [Unknown]
  - Influenza like illness [Unknown]
  - Chest pain [Unknown]
  - Constipation [Unknown]
  - Flushing [Unknown]
  - Peripheral sensory neuropathy [Unknown]
  - Musculoskeletal chest pain [Unknown]
  - Rash generalised [Unknown]
